FAERS Safety Report 8327012-X (Version None)
Quarter: 2012Q2

REPORT INFORMATION
  Report Type: 
  Country: None (occurrence: None)
  Receive Date: 20120501
  Receipt Date: 20111117
  Transmission Date: 20120825
  Serious: No
  Sender: FDA-Public Use
  Company Number: US-SANOFI-AVENTIS-2011SA077679

PATIENT
  Sex: Female

DRUGS (2)
  1. APIDRA [Suspect]
     Route: 058
  2. LANTUS [Suspect]
     Route: 058

REACTIONS (2)
  - RASH [None]
  - ARTHRALGIA [None]
